FAERS Safety Report 6256094-4 (Version None)
Quarter: 2009Q2

REPORT INFORMATION
  Report Type: 
  Country: None (occurrence: None)
  Receive Date: 20090630
  Receipt Date: 20090630
  Transmission Date: 20091009
  Serious: Yes (Other)
  Sender: FDA-Public Use
  Company Number: None

PATIENT
  Age: 61 Year
  Sex: Female

DRUGS (1)
  1. BOTOX [Suspect]
     Indication: FACIAL SPASM
     Dosage: 100 UNITS PER VIAL
     Dates: start: 20090611, end: 20090611

REACTIONS (3)
  - DROOLING [None]
  - EYELID FUNCTION DISORDER [None]
  - FACIAL PALSY [None]
